FAERS Safety Report 5136103-6 (Version None)
Quarter: 2006Q4

REPORT INFORMATION
  Report Type: 
  Country: None (occurrence: None)
  Receive Date: 20061027
  Receipt Date: 20061017
  Transmission Date: 20070319
  Serious: Yes (Life-Threatening, Hospitalization)
  Sender: FDA-Public Use
  Company Number: FR-BRISTOL-MYERS SQUIBB COMPANY-13555032

PATIENT
  Age: 37 Year
  Sex: Female

DRUGS (11)
  1. BLEOMYCIN SULFATE [Suspect]
     Indication: LYMPHOMA
     Route: 042
     Dates: start: 20060426, end: 20060426
  2. DIGOXIN [Concomitant]
     Indication: NODAL ARRHYTHMIA
     Dates: start: 20060422
  3. CORDARONE [Concomitant]
     Indication: NODAL ARRHYTHMIA
     Route: 048
     Dates: start: 20060422
  4. NEXIUM [Concomitant]
     Route: 048
     Dates: start: 20060422
  5. RITUXIMAB [Concomitant]
  6. FASTURTEC [Concomitant]
     Route: 048
     Dates: start: 20060425, end: 20060429
  7. ADRIBLASTINE [Concomitant]
     Indication: LYMPHOMA
     Route: 042
     Dates: start: 20060426, end: 20060426
  8. ENDOXAN [Concomitant]
     Indication: LYMPHOMA
     Route: 042
  9. ENDOXAN [Concomitant]
     Route: 042
  10. ELDISINE [Concomitant]
     Indication: LYMPHOMA
     Route: 042
  11. HEPARIN [Concomitant]
     Dates: start: 20060425

REACTIONS (1)
  - BRONCHOSPASM [None]
